FAERS Safety Report 7495822-7 (Version None)
Quarter: 2011Q2

REPORT INFORMATION
  Report Type: 
  Country: None (occurrence: None)
  Receive Date: 20110523
  Receipt Date: 20100611
  Transmission Date: 20111010
  Serious: Yes (Death, Hospitalization)
  Sender: FDA-Public Use
  Company Number: DE-EISAI INC-E2090-01198-SPO-DE

PATIENT
  Sex: Male
  Weight: 85 kg

DRUGS (21)
  1. AMINOMIX 1 [Concomitant]
  2. MIDAZOLAM HCL [Concomitant]
     Dosage: UNKNOWN
     Dates: end: 20100501
  3. VALPROIC ACID [Suspect]
     Dosage: UNKNOWN
     Dates: start: 20100408, end: 20100501
  4. ERGENYL CHRONO [Concomitant]
     Route: 048
     Dates: start: 20090801
  5. ACETYLCYSTEINE [Concomitant]
     Dosage: UNKNOWN
     Dates: start: 20100415
  6. FENISTIL RETARD CAPS [Concomitant]
  7. DORMICUM [Concomitant]
  8. ZONEGRAN [Suspect]
     Route: 048
     Dates: start: 20090801, end: 20100501
  9. PROPOFOL 2% [Concomitant]
  10. DELTAJONIN [Concomitant]
  11. CLONAZEPAM [Concomitant]
     Dosage: UNKNOWN
     Dates: start: 20100420
  12. NEXIUM [Concomitant]
     Dates: start: 20100415
  13. KCL-P [Concomitant]
  14. ARTERENOL [Concomitant]
  15. NOVALGIN [Suspect]
     Indication: PYREXIA
     Dosage: UNKNOWN
     Dates: start: 20100401
  16. CIPRO [Suspect]
     Dosage: UNKNOWN
     Dates: start: 20100408, end: 20100415
  17. THIAMINE HCL [Concomitant]
     Dates: start: 20100415
  18. TUTOFUSIN [Concomitant]
  19. FRISIUM [Concomitant]
     Dosage: UNKNOWN
     Dates: end: 20100501
  20. ORGARAN 750 E [Concomitant]
     Dosage: 750 UNITS
     Route: 058
  21. KALINOR [Concomitant]
     Dosage: UNKNOWN

REACTIONS (2)
  - PYELONEPHRITIS [None]
  - TOXIC EPIDERMAL NECROLYSIS [None]
